APPROVED DRUG PRODUCT: DOXYCYCLINE HYCLATE
Active Ingredient: DOXYCYCLINE HYCLATE
Strength: EQ 100MG BASE
Dosage Form/Route: TABLET;ORAL
Application: A065095 | Product #001 | TE Code: AB
Applicant: HIKMA INTERNATIONAL PHARMACEUTICALS LLC
Approved: Jul 2, 2003 | RLD: No | RS: No | Type: RX